FAERS Safety Report 8463010-3 (Version None)
Quarter: 2012Q2

REPORT INFORMATION
  Report Type: 
  Country: None (occurrence: None)
  Receive Date: 20120625
  Receipt Date: 20120618
  Transmission Date: 20120825
  Serious: Yes (Hospitalization)
  Sender: FDA-Public Use
  Company Number: DK-GLAXOSMITHKLINE-B0809763A

PATIENT
  Sex: Female

DRUGS (2)
  1. LAMICTAL [Suspect]
     Indication: DEPRESSION
     Route: 048
     Dates: start: 20050101, end: 20110526
  2. EFFEXOR [Suspect]
     Indication: DEPRESSION
     Route: 048
     Dates: start: 20041201, end: 20110601

REACTIONS (11)
  - VOMITING [None]
  - DRUG-INDUCED LIVER INJURY [None]
  - JAUNDICE [None]
  - NAUSEA [None]
  - FATIGUE [None]
  - HEPATIC ENZYME INCREASED [None]
  - DECREASED APPETITE [None]
  - CHROMATURIA [None]
  - WEIGHT DECREASED [None]
  - ABDOMINAL PAIN [None]
  - CONSTIPATION [None]
